FAERS Safety Report 17552500 (Version 6)
Quarter: 2020Q3

REPORT INFORMATION
  Report Type: Report from Study
  Country: US (occurrence: US)
  Receive Date: 20200318
  Receipt Date: 20200810
  Transmission Date: 20201102
  Serious: Yes (Other)
  Sender: FDA-Public Use
  Company Number: NVSC2020US072024

PATIENT
  Sex: Female

DRUGS (1)
  1. COSENTYX [Suspect]
     Active Substance: SECUKINUMAB
     Indication: PSORIATIC ARTHROPATHY
     Dosage: 300 MG, QMO
     Route: 058
     Dates: start: 20190213

REACTIONS (16)
  - Psoriasis [Unknown]
  - Tonsillitis [Unknown]
  - Pain in extremity [Unknown]
  - Psoriatic arthropathy [Unknown]
  - Pain [Not Recovered/Not Resolved]
  - Joint swelling [Unknown]
  - Ovarian enlargement [Unknown]
  - Nasal congestion [Unknown]
  - Influenza [Unknown]
  - Pharyngitis streptococcal [Recovered/Resolved]
  - Arthralgia [Unknown]
  - Ovarian haemorrhage [Unknown]
  - Sinusitis [Unknown]
  - Tonsillolith [Unknown]
  - Epstein-Barr virus infection [Unknown]
  - Treatment failure [Unknown]
